APPROVED DRUG PRODUCT: ACETASOL HC
Active Ingredient: ACETIC ACID, GLACIAL; HYDROCORTISONE
Strength: 2%;1%
Dosage Form/Route: SOLUTION/DROPS;OTIC
Application: A087143 | Product #001
Applicant: ACTAVIS MID ATLANTIC LLC
Approved: Jan 13, 1982 | RLD: No | RS: No | Type: DISCN